FAERS Safety Report 16871473 (Version 1)
Quarter: 2019Q4

REPORT INFORMATION
  Report Type: Spontaneous
  Country: GB (occurrence: GB)
  Receive Date: 20191001
  Receipt Date: 20191001
  Transmission Date: 20200122
  Serious: Yes (Life-Threatening, Other)
  Sender: FDA-Public Use
  Company Number: GB-TEVA-2019-GB-1114822

PATIENT
  Age: 75 Year
  Sex: Female
  Weight: 80.4 kg

DRUGS (1)
  1. BISOPROLOL [Suspect]
     Active Substance: BISOPROLOL
     Indication: ARTERIOSCLEROSIS CORONARY ARTERY
     Dosage: 2.5 MILLIGRAM
     Route: 048
     Dates: start: 20190219, end: 20190219

REACTIONS (1)
  - Bradycardia [Recovered/Resolved]

NARRATIVE: CASE EVENT DATE: 20190219
